FAERS Safety Report 13012274 (Version 2)
Quarter: 2017Q1

REPORT INFORMATION
  Report Type: Spontaneous
  Country: US (occurrence: US)
  Receive Date: 20161209
  Receipt Date: 20170104
  Transmission Date: 20170428
  Serious: Yes (Hospitalization)
  Sender: FDA-Public Use
  Company Number: US-PFIZER INC-2016567681

PATIENT
  Age: 73 Year
  Sex: Male

DRUGS (2)
  1. SULFASALAZINE. [Suspect]
     Active Substance: SULFASALAZINE
     Indication: COLITIS
     Dosage: 1000 MG, 4X/DAY
     Dates: start: 20160825
  2. SULFASALAZINE. [Suspect]
     Active Substance: SULFASALAZINE
     Dosage: 500 MG, 3X/DAY

REACTIONS (7)
  - Fatigue [Recovering/Resolving]
  - Dyspepsia [Recovering/Resolving]
  - Chest pain [Recovering/Resolving]
  - Abdominal discomfort [Recovering/Resolving]
  - Drug ineffective [Recovering/Resolving]
  - Abdominal pain upper [Recovering/Resolving]
  - Depressed mood [Recovering/Resolving]
